FAERS Safety Report 5132953-0 (Version None)
Quarter: 2006Q4

REPORT INFORMATION
  Report Type: 
  Country: None (occurrence: None)
  Receive Date: 20061023
  Receipt Date: 20061011
  Transmission Date: 20070319
  Serious: Yes (Hospitalization)
  Sender: FDA-Public Use
  Company Number: FR-SANOFI-SYNTHELABO-A02200602586

PATIENT
  Age: 28 Year
  Sex: Female

DRUGS (5)
  1. TRANXENE [Suspect]
     Indication: DRUG USE FOR UNKNOWN INDICATION
     Route: 048
     Dates: start: 20060906, end: 20060911
  2. ZOLPIDEM TARTRATE [Suspect]
     Indication: DRUG USE FOR UNKNOWN INDICATION
     Route: 048
     Dates: start: 20060906, end: 20060911
  3. GESTODENE AND ETHINYL ESTRADIOL [Suspect]
     Indication: DRUG USE FOR UNKNOWN INDICATION
     Dosage: ONCE : GESTODENE+ETHINYLESTRADIOL:10.08 MG+2.52 MG
     Route: 048
     Dates: start: 20060905, end: 20060905
  4. LORAZEPAM [Suspect]
     Indication: DRUG USE FOR UNKNOWN INDICATION
     Route: 048
     Dates: start: 20060906, end: 20060911
  5. DEROXAT [Suspect]
     Indication: DRUG USE FOR UNKNOWN INDICATION
     Route: 048
     Dates: start: 20060906, end: 20060911

REACTIONS (2)
  - ABDOMINAL PAIN [None]
  - HEPATIC NECROSIS [None]
